FAERS Safety Report 9655068 (Version 1)
Quarter: 2013Q4

REPORT INFORMATION
  Report Type: Spontaneous
  Country: US (occurrence: US)
  Receive Date: 20131029
  Receipt Date: 20131029
  Transmission Date: 20140711
  Serious: No
  Sender: FDA-Public Use
  Company Number: US-PURDUE-USA-2012-0093739

PATIENT
  Sex: Male

DRUGS (2)
  1. OXYCONTIN (NDA 22-272) [Suspect]
     Indication: PAIN
     Dosage: 40 MG, Q6H
     Route: 048
     Dates: start: 20120924
  2. NORCO [Concomitant]
     Indication: PAIN
     Dosage: 10/325 MG, 8 TIMES A DAY
     Route: 048
     Dates: start: 2009

REACTIONS (2)
  - Drug ineffective [Not Recovered/Not Resolved]
  - Inadequate analgesia [Unknown]
